FAERS Safety Report 17676090 (Version 1)
Quarter: 2020Q2

REPORT INFORMATION
  Report Type: Report from Study
  Country: CN (occurrence: CN)
  Receive Date: 20200416
  Receipt Date: 20200416
  Transmission Date: 20200714
  Serious: Yes (Other)
  Sender: FDA-Public Use
  Company Number: CN-ROCHE-2578495

PATIENT
  Sex: Female

DRUGS (5)
  1. DIPHENHYDRAMINE. [Concomitant]
     Active Substance: DIPHENHYDRAMINE
     Indication: ALLERGY PROPHYLAXIS
     Route: 030
  2. CIMETIDINE [Concomitant]
     Active Substance: CIMETIDINE
     Indication: ALLERGY PROPHYLAXIS
     Route: 042
  3. DOCETAXEL. [Suspect]
     Active Substance: DOCETAXEL
     Indication: BREAST CANCER
     Dosage: D1
     Route: 041
  4. DEXAMETHASONE. [Concomitant]
     Active Substance: DEXAMETHASONE
     Indication: ALLERGY PROPHYLAXIS
     Route: 048
  5. CAPECITABINE. [Suspect]
     Active Substance: CAPECITABINE
     Indication: BREAST CANCER
     Dosage: DIVIDED INTO 2 DOSES
     Route: 048

REACTIONS (14)
  - Hepatic function abnormal [Recovering/Resolving]
  - Alopecia [Recovering/Resolving]
  - Phlebitis [Recovering/Resolving]
  - Palmar-plantar erythrodysaesthesia syndrome [Unknown]
  - Leukopenia [Unknown]
  - Renal impairment [Recovering/Resolving]
  - Cardiac dysfunction [Recovering/Resolving]
  - White blood cell count decreased [Unknown]
  - Nausea [Recovering/Resolving]
  - Diarrhoea [Recovering/Resolving]
  - Vomiting [Recovering/Resolving]
  - Stomatitis [Recovering/Resolving]
  - Bone marrow failure [Unknown]
  - Platelet count decreased [Unknown]
